FAERS Safety Report 7764785-9 (Version None)
Quarter: 2011Q3

REPORT INFORMATION
  Report Type: 
  Country: None (occurrence: None)
  Receive Date: 20110921
  Receipt Date: 20110921
  Transmission Date: 20111222
  Serious: Yes (Other)
  Sender: FDA-Public Use
  Company Number: None

PATIENT
  Age: 54 Year
  Sex: Female
  Weight: 136.07 kg

DRUGS (3)
  1. WELLBUTRIN [Concomitant]
  2. SAVELLA [Suspect]
     Indication: FIBROMYALGIA
     Dosage: 50 MG
     Route: 048
     Dates: start: 20110628, end: 20110920
  3. LAMOTRIGINE [Concomitant]

REACTIONS (4)
  - NAUSEA [None]
  - VOMITING [None]
  - FLUSHING [None]
  - BLOOD PRESSURE INCREASED [None]
